FAERS Safety Report 4422302-5 (Version None)
Quarter: 2004Q3

REPORT INFORMATION
  Report Type: 
  Country: None (occurrence: None)
  Receive Date: 20040810
  Receipt Date: 20040707
  Transmission Date: 20050211
  Serious: Yes (Hospitalization, Disabling, Other)
  Sender: FDA-Public Use
  Company Number: US-GLAXOSMITHKLINE-A0517243A

PATIENT
  Age: 17 Year
  Sex: Female

DRUGS (2)
  1. TRIZIVIR [Suspect]
     Indication: HIV INFECTION
     Route: 048
     Dates: start: 20040606, end: 20040702
  2. VIREAD [Concomitant]
     Indication: HIV INFECTION
     Dates: start: 20040606, end: 20040702

REACTIONS (7)
  - HYPOTENSION [None]
  - MALAISE [None]
  - PYREXIA [None]
  - RASH [None]
  - RENAL FAILURE [None]
  - SKIN DESQUAMATION [None]
  - TOXIC SHOCK SYNDROME STAPHYLOCOCCAL [None]
